FAERS Safety Report 10203477 (Version 1)
Quarter: 2014Q2

REPORT INFORMATION
  Report Type: Spontaneous
  Country: CA (occurrence: CA)
  Receive Date: 20140529
  Receipt Date: 20140529
  Transmission Date: 20141212
  Serious: Yes (Hospitalization)
  Sender: FDA-Public Use
  Company Number: CA-MERCK-1405CAN012774

PATIENT
  Sex: Male

DRUGS (1)
  1. POSANOL [Suspect]
     Indication: LYMPHOMA
     Dosage: UNK
     Route: 048
     Dates: start: 20140330

REACTIONS (3)
  - Diplopia [Unknown]
  - Neuropathy peripheral [Unknown]
  - Blood test abnormal [Recovering/Resolving]
